FAERS Safety Report 10242031 (Version 1)
Quarter: 2014Q1

REPORT INFORMATION
  Report Type: Spontaneous
  Country: US (occurrence: None)
  Receive Date: 20140306
  Receipt Date: 20140306
  Transmission Date: 20141002
  Serious: Yes (Other)
  Sender: FDA-Public Use
  Company Number: 163-21880-13060645

PATIENT
  Age: 57 Year
  Sex: Male

DRUGS (7)
  1. REVLIMID [Suspect]
     Indication: PLASMA CELL MYELOMA
     Dosage: 18.75 MG, 21 IN 28 D, PO
     Route: 048
     Dates: start: 201101, end: 2011
  2. ACYCLOVIR (ACICLOVIR) (ACICLOVIR) [Concomitant]
  3. DEXAMETHASONE [Concomitant]
  4. FISH OIL [Concomitant]
  5. VITAMIN  D (ERGOCALCIFEROL) [Concomitant]
  6. MULTIVITAMINS [Concomitant]
  7. VITAMINS B12 (CYANOCOBALAMIN) [Concomitant]

REACTIONS (2)
  - Weight increased [None]
  - Dizziness [None]
